FAERS Safety Report 19578012 (Version 1)
Quarter: 2021Q3

REPORT INFORMATION
  Report Type: Spontaneous
  Country: JP (occurrence: JP)
  Receive Date: 20210719
  Receipt Date: 20210719
  Transmission Date: 20211014
  Serious: Yes (Other)
  Sender: FDA-Public Use
  Company Number: JP-JUBILANT CADISTA PHARMACEUTICALS-2021JUB00207

PATIENT
  Age: 12 Year
  Sex: Male
  Weight: 46 kg

DRUGS (7)
  1. PREDNISOLONE. [Concomitant]
     Active Substance: PREDNISOLONE
     Indication: IGA NEPHROPATHY
     Dosage: 40 MG
     Route: 048
  2. HEPARIN [Concomitant]
     Active Substance: HEPARIN SODIUM
     Dosage: 10 UNIT/KG/H
     Route: 065
  3. MIZORIBINE [Concomitant]
     Active Substance: MIZORIBINE
     Dosage: 150 MG
     Route: 065
  4. DIPYRIDAMOLE. [Suspect]
     Active Substance: DIPYRIDAMOLE
     Indication: IGA NEPHROPATHY
     Dosage: 300 MG
     Route: 065
  5. METHYLPREDNISOLONE. [Suspect]
     Active Substance: METHYLPREDNISOLONE
     Dosage: CYCLE 2 (THE FOLLOWING WEEK FROM CYCLE 1)
     Route: 042
  6. METHYLPREDNISOLONE. [Suspect]
     Active Substance: METHYLPREDNISOLONE
     Dosage: CYCLE 3 (2 WEEKS AFTER CYCLE 2)
     Route: 042
  7. METHYLPREDNISOLONE. [Suspect]
     Active Substance: METHYLPREDNISOLONE
     Indication: IGA NEPHROPATHY
     Dosage: 1 G FOR 2 HOURS FOR 3 CONSECUTIVE DAYS (CYCLE 1)
     Route: 042

REACTIONS (2)
  - Myocardial ischaemia [Recovered/Resolved]
  - Drug interaction [Recovered/Resolved]
